FAERS Safety Report 6998765-8 (Version None)
Quarter: 2010Q3

REPORT INFORMATION
  Report Type: 
  Country: None (occurrence: None)
  Receive Date: 20100920
  Receipt Date: 20100315
  Transmission Date: 20110219
  Serious: Yes (Other)
  Sender: FDA-Public Use
  Company Number: US-ASTRAZENECA-2010SE11078

PATIENT
  Age: 532 Month
  Sex: Female
  Weight: 56.2 kg

DRUGS (2)
  1. SEROQUEL [Suspect]
     Indication: ANXIETY
     Route: 048
     Dates: start: 20040101
  2. SUBOXONE [Concomitant]
     Indication: DRUG DEPENDENCE

REACTIONS (1)
  - CATARACT [None]
